FAERS Safety Report 6881441-X (Version None)
Quarter: 2010Q3

REPORT INFORMATION
  Report Type: 
  Country: None (occurrence: None)
  Receive Date: 20100728
  Receipt Date: 20100728
  Transmission Date: 20110219
  Serious: Yes (Life-Threatening)
  Sender: FDA-Public Use
  Company Number: None

PATIENT
  Sex: Female
  Weight: 183.7068 kg

DRUGS (1)
  1. PROAIR HFA [Suspect]
     Indication: EMPHYSEMA
     Dosage: 2 PUFFS Q4-6HRS INHAL
     Route: 055
     Dates: start: 20090701, end: 20100727

REACTIONS (3)
  - DEVICE MALFUNCTION [None]
  - INCORRECT DOSE ADMINISTERED BY DEVICE [None]
  - PRODUCT QUALITY ISSUE [None]
